FAERS Safety Report 9722317 (Version 1)
Quarter: 2013Q4

REPORT INFORMATION
  Report Type: Report from Study
  Country: CO (occurrence: CO)
  Receive Date: 20131202
  Receipt Date: 20131202
  Transmission Date: 20140711
  Serious: Yes (Hospitalization)
  Sender: FDA-Public Use
  Company Number: CO-SA-2013SA120663

PATIENT
  Age: 77 Year
  Sex: Female

DRUGS (7)
  1. LANTUS [Suspect]
     Indication: DIABETES MELLITUS
     Dosage: DOSE:16 UNIT(S)
     Route: 058
     Dates: start: 201309
  2. LOSARTAN [Concomitant]
     Indication: HYPERTENSION
     Route: 048
  3. AMLODIPINE [Concomitant]
     Indication: HYPERTENSION
     Route: 048
  4. HYDROCHLOROTHIAZIDE [Concomitant]
     Indication: HYPERTENSION
     Route: 048
  5. ATORVASTATIN [Concomitant]
     Indication: DYSLIPIDAEMIA
     Route: 048
  6. ACETAMINOPHEN [Concomitant]
     Indication: ARTHRALGIA
     Route: 048
  7. LYRICA [Concomitant]
     Indication: DIABETIC NEUROPATHY
     Route: 048

REACTIONS (3)
  - Fall [Unknown]
  - Upper limb fracture [Recovering/Resolving]
  - Postoperative wound infection [Recovering/Resolving]
